FAERS Safety Report 17077897 (Version 1)
Quarter: 2019Q4

REPORT INFORMATION
  Report Type: Spontaneous
  Country: US (occurrence: US)
  Receive Date: 20191126
  Receipt Date: 20191126
  Transmission Date: 20200122
  Serious: Yes (Other)
  Sender: FDA-Public Use
  Company Number: US-009507513-1911USA009878

PATIENT
  Sex: Female

DRUGS (9)
  1. PROGESTERONE. [Concomitant]
     Active Substance: PROGESTERONE
  2. FOLLISTIM AQ [Suspect]
     Active Substance: FOLLITROPIN
     Indication: INFERTILITY FEMALE
     Dosage: 150-300 UNITS, QD
     Route: 058
     Dates: start: 20191019
  3. MENOPUR [Suspect]
     Active Substance: FOLLITROPIN\LUTEINIZING HORMONE
     Dosage: 2-4 VIALS, QD
     Route: 058
  4. FOLLISTIM AQ [Suspect]
     Active Substance: FOLLITROPIN
  5. LEUPROLIDE [Concomitant]
     Active Substance: LEUPROLIDE
  6. NOVAREL [Concomitant]
     Active Substance: CHORIOGONADOTROPIN ALFA
  7. ENDOMETRIN [Concomitant]
     Active Substance: PROGESTERONE
  8. GANIRELIX ACETATE. [Concomitant]
     Active Substance: GANIRELIX ACETATE
  9. ENOXAPARIN SODIUM. [Concomitant]
     Active Substance: ENOXAPARIN SODIUM

REACTIONS (2)
  - Haemorrhage [Unknown]
  - Maternal exposure before pregnancy [Unknown]

NARRATIVE: CASE EVENT DATE: 2019
